FAERS Safety Report 22053645 (Version 2)
Quarter: 2023Q1

REPORT INFORMATION
  Report Type: Spontaneous
  Country: US (occurrence: US)
  Receive Date: 20230302
  Receipt Date: 20230315
  Transmission Date: 20230417
  Serious: No
  Sender: FDA-Public Use
  Company Number: US-JNJFOC-20230244455

PATIENT
  Age: 64 Year
  Sex: Female

DRUGS (3)
  1. ZYRTEC [Suspect]
     Active Substance: CETIRIZINE HYDROCHLORIDE
     Indication: Sneezing
     Dosage: TAKEN FOR OVER A MONTH NOW
     Route: 048
     Dates: start: 20230301, end: 20230302
  2. ZYRTEC [Suspect]
     Active Substance: CETIRIZINE HYDROCHLORIDE
     Indication: Rhinorrhoea
  3. VYEPTI [EPTINEZUMAB] [Concomitant]
     Indication: Migraine
     Route: 065
     Dates: start: 202212

REACTIONS (1)
  - Therapeutic product effect incomplete [Unknown]
